FAERS Safety Report 18202436 (Version 1)
Quarter: 2020Q3

REPORT INFORMATION
  Report Type: Spontaneous
  Country: US (occurrence: US)
  Receive Date: 20200827
  Receipt Date: 20200827
  Transmission Date: 20201103
  Serious: No
  Sender: FDA-Public Use
  Company Number: None

PATIENT

DRUGS (1)
  1. METHOTREXATE INJECTION METHOTREXATE [Suspect]
     Active Substance: METHOTREXATE
     Dosage: ?          OTHER STRENGTH:1 GRAM PER VIAL;OTHER DOSE:1 G PER VIAL;OTHER ROUTE:INJECTION?

REACTIONS (2)
  - Product dispensing error [None]
  - Product prescribing error [None]
